FAERS Safety Report 25531467 (Version 1)
Quarter: 2025Q3

REPORT INFORMATION
  Report Type: Report from Study
  Country: US (occurrence: US)
  Receive Date: 20250708
  Receipt Date: 20250708
  Transmission Date: 20251020
  Serious: Yes (Hospitalization)
  Sender: ABBVIE
  Company Number: US-ABBVIE-6232698

PATIENT
  Age: 60 Year
  Sex: Female

DRUGS (2)
  1. RINVOQ [Suspect]
     Active Substance: UPADACITINIB
     Indication: Colitis ulcerative
     Route: 058
     Dates: start: 20240729
  2. RINVOQ [Suspect]
     Active Substance: UPADACITINIB
     Indication: Colitis ulcerative
     Route: 058
     Dates: start: 20240821

REACTIONS (4)
  - Haemorrhage [Unknown]
  - Nervousness [Unknown]
  - Haemorrhage [Recovered/Resolved]
  - Obstruction [Recovered/Resolved]

NARRATIVE: CASE EVENT DATE: 20240101
